FAERS Safety Report 6372088-2 (Version None)
Quarter: 2009Q3

REPORT INFORMATION
  Report Type: 
  Country: None (occurrence: None)
  Receive Date: 20090917
  Receipt Date: 20090908
  Transmission Date: 20100115
  Serious: Yes (Death)
  Sender: FDA-Public Use
  Company Number: OMPQ-NO-0909S-0793

PATIENT
  Age: 33 Year
  Sex: Male

DRUGS (1)
  1. OMNIPAQUE 300 [Suspect]
     Indication: VASCULAR INJURY
     Dosage: 150 ML, I.A.
     Route: 014
     Dates: start: 20090908, end: 20090908

REACTIONS (4)
  - DEHYDRATION [None]
  - PROTHROMBIN TIME PROLONGED [None]
  - PULMONARY EMBOLISM [None]
  - RESUSCITATION [None]
